FAERS Safety Report 5730263-1 (Version None)
Quarter: 2008Q2

REPORT INFORMATION
  Report Type: 
  Country: None (occurrence: None)
  Receive Date: 20080430
  Receipt Date: 20080125
  Transmission Date: 20081010
  Serious: No
  Sender: FDA-Public Use
  Company Number: 2008PV034120

PATIENT
  Sex: Male
  Weight: 101.3789 kg

DRUGS (17)
  1. SYMLIN [Suspect]
     Indication: TYPE 2 DIABETES MELLITUS
     Dosage: 120 MCG;QID;SC
     Route: 058
     Dates: start: 20080101
  2. WARFARIN SODIUM [Concomitant]
  3. COREG [Concomitant]
  4. SPIRONLACTONE [Concomitant]
  5. STOOL SOFTENER /WITH LAXATIVE [Concomitant]
  6. CALCIUM [Concomitant]
  7. POTASSIUM CHLORIDE [Concomitant]
  8. ECLIPSE [Concomitant]
  9. METOLOAZONE [Concomitant]
  10. ISOSORBIDE DINITRATE [Concomitant]
  11. FUROSEMIDE [Concomitant]
  12. LANOXIN [Concomitant]
  13. ASPIRIN [Concomitant]
  14. MAGNESIUMOXIDE [Concomitant]
  15. DILTIAZEM HCL [Concomitant]
  16. NOVOLOG [Concomitant]
  17. LANTUS [Concomitant]

REACTIONS (3)
  - BLOOD GLUCOSE INCREASED [None]
  - HUNGER [None]
  - WEIGHT INCREASED [None]
